FAERS Safety Report 7092890-1 (Version None)
Quarter: 2010Q4

REPORT INFORMATION
  Report Type: 
  Country: None (occurrence: None)
  Receive Date: 20101110
  Receipt Date: 20101101
  Transmission Date: 20110411
  Serious: No
  Sender: FDA-Public Use
  Company Number: US-PFIZER INC-2010125150

PATIENT
  Sex: Female

DRUGS (2)
  1. LYRICA [Suspect]
     Dosage: UNK
     Route: 048
     Dates: start: 20100101, end: 20100928
  2. LYRICA [Suspect]
     Dosage: 50 MG, 1X/DAY
     Route: 048
     Dates: start: 20100928

REACTIONS (6)
  - ASTHENIA [None]
  - FEELING ABNORMAL [None]
  - GAIT DISTURBANCE [None]
  - INCORRECT DOSE ADMINISTERED [None]
  - MALAISE [None]
  - PRURITUS GENERALISED [None]
